FAERS Safety Report 8189124-3 (Version None)
Quarter: 2012Q1

REPORT INFORMATION
  Report Type: 
  Country: None (occurrence: None)
  Receive Date: 20120307
  Receipt Date: 20120223
  Transmission Date: 20120608
  Serious: Yes (Hospitalization)
  Sender: FDA-Public Use
  Company Number: TR-AMGEN-TURSP2012012488

PATIENT
  Age: 40 Year
  Sex: Female

DRUGS (1)
  1. ENBREL [Suspect]
     Indication: ANKYLOSING SPONDYLITIS
     Dosage: 25 MG, 2X/WEEK
     Route: 058
     Dates: start: 20110603, end: 20120214

REACTIONS (7)
  - ABDOMINAL PAIN [None]
  - NAUSEA [None]
  - ASTHMA [None]
  - DYSPNOEA [None]
  - DIARRHOEA [None]
  - SINUSITIS [None]
  - BRONCHITIS [None]
